FAERS Safety Report 7883838-8 (Version None)
Quarter: 2011Q4

REPORT INFORMATION
  Report Type: 
  Country: None (occurrence: None)
  Receive Date: 20111102
  Receipt Date: 20111020
  Transmission Date: 20120403
  Serious: Yes (Hospitalization, Other)
  Sender: FDA-Public Use
  Company Number: CA-ELI_LILLY_AND_COMPANY-CA201110005256

PATIENT
  Sex: Female

DRUGS (4)
  1. COUMADIN [Concomitant]
  2. ZYPREXA [Suspect]
     Dosage: 1 DF, UNK
     Dates: start: 19980710, end: 20000418
  3. DILANTIN [Concomitant]
  4. LASIX [Concomitant]

REACTIONS (7)
  - PULMONARY EMBOLISM [None]
  - MACULAR DEGENERATION [None]
  - PNEUMONIA [None]
  - CARDIAC FAILURE CONGESTIVE [None]
  - PULMONARY OEDEMA [None]
  - DIABETES MELLITUS [None]
  - DIABETIC NEUROPATHY [None]
